FAERS Safety Report 20491804 (Version 1)
Quarter: 2022Q1

REPORT INFORMATION
  Report Type: Other
  Country: US (occurrence: None)
  Receive Date: 20220218
  Receipt Date: 20220218
  Transmission Date: 20220423
  Serious: Yes (Other)
  Sender: FDA-Public Use
  Company Number: US-ROCHE-3021645

PATIENT
  Sex: Male

DRUGS (10)
  1. OCREVUS [Suspect]
     Active Substance: OCRELIZUMAB
     Indication: Multiple sclerosis
     Route: 058
  2. ALBUTEROL [Concomitant]
     Active Substance: ALBUTEROL
     Dosage: 2.5 MG/3 ML
  3. XANAX [Concomitant]
     Active Substance: ALPRAZOLAM
  4. LIORESAL [Concomitant]
     Active Substance: BACLOFEN
  5. BUSPAR [Concomitant]
     Active Substance: BUSPIRONE HYDROCHLORIDE
  6. ZYRTEC (UNITED STATES) [Concomitant]
  7. BENADRYL [Concomitant]
     Active Substance: DIPHENHYDRAMINE HYDROCHLORIDE
  8. NEURONTIN [Concomitant]
     Active Substance: GABAPENTIN
  9. HYDRODIURIL [Concomitant]
     Active Substance: HYDROCHLOROTHIAZIDE
  10. IBUPROFEN [Concomitant]
     Active Substance: IBUPROFEN

REACTIONS (10)
  - Pain [Unknown]
  - Cervical radiculopathy [Unknown]
  - Multiple sclerosis relapse [Unknown]
  - Syncope [Unknown]
  - Neck pain [Unknown]
  - Migraine [Unknown]
  - Lumbar radiculopathy [Unknown]
  - Sleep apnoea syndrome [Unknown]
  - Injury [Unknown]
  - Cellulitis [Unknown]
